FAERS Safety Report 23390527 (Version 1)
Quarter: 2024Q1

REPORT INFORMATION
  Report Type: Report from Study
  Country: US (occurrence: US)
  Receive Date: 20240111
  Receipt Date: 20240111
  Transmission Date: 20240409
  Serious: Yes (Hospitalization)
  Sender: FDA-Public Use
  Company Number: US-JNJFOC-20240112809

PATIENT
  Age: 70 Year
  Sex: Male
  Weight: 75 kg

DRUGS (7)
  1. DARATUMUMAB [Suspect]
     Active Substance: DARATUMUMAB
     Indication: Plasma cell myeloma
     Route: 058
     Dates: start: 20230301
  2. DARATUMUMAB [Suspect]
     Active Substance: DARATUMUMAB
     Route: 058
     Dates: start: 20230804
  3. ELRANATAMAB [Suspect]
     Active Substance: ELRANATAMAB
     Indication: Plasma cell myeloma
     Dosage: C1D1
     Route: 065
     Dates: start: 20230214, end: 20230214
  4. ELRANATAMAB [Suspect]
     Active Substance: ELRANATAMAB
     Dosage: C1D4
     Route: 065
     Dates: start: 20230217, end: 20230217
  5. ELRANATAMAB [Suspect]
     Active Substance: ELRANATAMAB
     Dosage: C1D8
     Route: 065
     Dates: start: 20230222, end: 20230222
  6. ELRANATAMAB [Suspect]
     Active Substance: ELRANATAMAB
     Dosage: C1D15
     Route: 065
     Dates: start: 20230301
  7. ELRANATAMAB [Suspect]
     Active Substance: ELRANATAMAB
     Dosage: C7D1
     Route: 065
     Dates: start: 20230804

REACTIONS (2)
  - Cytomegalovirus chorioretinitis [Recovered/Resolved]
  - Cytomegalovirus infection [Recovered/Resolved]

NARRATIVE: CASE EVENT DATE: 20230828
